FAERS Safety Report 8418506 (Version 2)
Quarter: 2015Q1

REPORT INFORMATION
  Report Type: Report from Study
  Country: US (occurrence: US)
  Receive Date: 20120221
  Receipt Date: 20150116
  Transmission Date: 20150721
  Serious: Yes (Death)
  Sender: FDA-Public Use
  Company Number: US-ROCHE-1040356

PATIENT
  Sex: Male

DRUGS (1)
  1. AVASTIN [Suspect]
     Active Substance: BEVACIZUMAB
     Indication: LUNG NEOPLASM MALIGNANT
     Dosage: HE RECEIVED SAME DOSE ON 12/JAN/2011, 02/FEB/2011 AND 24 FEB/2011.
     Route: 042
     Dates: start: 20101222

REACTIONS (1)
  - Death [Fatal]
